FAERS Safety Report 6808177-5 (Version None)
Quarter: 2010Q2

REPORT INFORMATION
  Report Type: 
  Country: None (occurrence: None)
  Receive Date: 20100629
  Receipt Date: 20090402
  Transmission Date: 20101027
  Serious: Yes (Other)
  Sender: FDA-Public Use
  Company Number: US-PFIZER INC-2009164397

PATIENT
  Sex: Male
  Weight: 77.098 kg

DRUGS (3)
  1. VIAGRA [Suspect]
     Indication: ERECTILE DYSFUNCTION
     Dosage: 50 MG, AS NEEDED
     Dates: end: 20081001
  2. AMLODIPINE BESYLATE AND BENAZEPRIL HCL [Concomitant]
     Dosage: UNK
  3. MIRTAZAPINE [Concomitant]
     Dosage: UNK

REACTIONS (1)
  - DEAFNESS [None]
